FAERS Safety Report 4490676-5 (Version None)
Quarter: 2004Q4

REPORT INFORMATION
  Report Type: 
  Country: None (occurrence: None)
  Receive Date: 20041102
  Receipt Date: 20041025
  Transmission Date: 20050328
  Serious: Yes (Other)
  Sender: FDA-Public Use
  Company Number: US-GLAXOSMITHKLINE-A0531793A

PATIENT
  Sex: Female

DRUGS (5)
  1. WELLBUTRIN [Suspect]
     Indication: DRUG USE FOR UNKNOWN INDICATION
     Route: 048
  2. WELLBUTRIN [Suspect]
     Dosage: 150MG PER DAY
  3. LOPRESSOR [Concomitant]
     Route: 065
  4. PRILOSEC [Concomitant]
  5. PREMARIN [Concomitant]
     Indication: HORMONE REPLACEMENT THERAPY
     Dosage: .3MG UNKNOWN
     Route: 065

REACTIONS (3)
  - DEPRESSION [None]
  - MURDER [None]
  - UNEXPECTED THERAPEUTIC DRUG EFFECT [None]
